FAERS Safety Report 9260011 (Version 2)
Quarter: 2013Q4

REPORT INFORMATION
  Report Type: Spontaneous
  Country: FR (occurrence: FR)
  Receive Date: 20130429
  Receipt Date: 20131030
  Transmission Date: 20140711
  Serious: Yes (Other)
  Sender: FDA-Public Use
  Company Number: FR-JNJFOC-20130412923

PATIENT
  Age: 51 Year
  Sex: Male

DRUGS (8)
  1. XARELTO [Suspect]
     Indication: CEREBROVASCULAR ACCIDENT PROPHYLAXIS
     Route: 048
     Dates: start: 20130227, end: 20130425
  2. XARELTO [Suspect]
     Indication: ATRIAL FIBRILLATION
     Route: 048
     Dates: start: 20130227, end: 20130425
  3. BISOPROLOL [Concomitant]
     Route: 065
  4. FLECAINE [Concomitant]
     Route: 065
  5. APROVEL [Concomitant]
     Route: 065
  6. STAGID [Concomitant]
     Route: 065
  7. TAHOR [Concomitant]
     Route: 065
  8. KARDEGIC [Concomitant]
     Route: 065

REACTIONS (1)
  - Thrombocytopenia [Unknown]
